FAERS Safety Report 7079485-0 (Version None)
Quarter: 2010Q4

REPORT INFORMATION
  Report Type: 
  Country: None (occurrence: None)
  Receive Date: 20101102
  Receipt Date: 20101022
  Transmission Date: 20110411
  Serious: Yes (Other)
  Sender: FDA-Public Use
  Company Number: US-MYLANLABS-2010S1017600

PATIENT
  Age: 56 Year
  Sex: Female
  Weight: 78.7 kg

DRUGS (4)
  1. HYDROCHLOROTHIAZIDE [Suspect]
     Indication: HYPERTENSION
     Route: 048
     Dates: start: 20090728, end: 20090817
  2. HYDROCHLOROTHIAZIDE [Suspect]
     Route: 048
     Dates: start: 20090818, end: 20090820
  3. LISINOPRIL [Suspect]
     Indication: HYPERTENSION
     Route: 048
     Dates: start: 20090624, end: 20090820
  4. ZYRTEC [Concomitant]
     Indication: SEASONAL ALLERGY
     Dates: start: 20020101

REACTIONS (1)
  - ANGIOEDEMA [None]
